FAERS Safety Report 16145847 (Version 1)
Quarter: 2019Q2

REPORT INFORMATION
  Report Type: Spontaneous
  Country: US (occurrence: US)
  Receive Date: 20190227
  Receipt Date: 20190227
  Transmission Date: 20190711
  Serious: Yes (Life-Threatening, Hospitalization, Other)
  Sender: FDA-Public Use
  Company Number: None

PATIENT
  Age: 80 Year
  Sex: Male
  Weight: 77.11 kg

DRUGS (1)
  1. SULFAMETHOXAZOLE/TRIMETHOPRIM [Suspect]
     Active Substance: SULFAMETHOXAZOLE\TRIMETHOPRIM
     Indication: CELLULITIS
     Route: 048
     Dates: start: 20181211, end: 20181214

REACTIONS (14)
  - Cellulitis [None]
  - Asthenia [None]
  - Fall [None]
  - Atrial fibrillation [None]
  - Leukocytosis [None]
  - Hyperkalaemia [None]
  - Chest wall haematoma [None]
  - Staphylococcal abscess [None]
  - Encephalopathy [None]
  - Hypotension [None]
  - Acute kidney injury [None]
  - Sepsis [None]
  - Azotaemia [None]
  - Renal impairment [None]

NARRATIVE: CASE EVENT DATE: 20181214
